FAERS Safety Report 5283995-6 (Version None)
Quarter: 2007Q2

REPORT INFORMATION
  Report Type: 
  Country: None (occurrence: None)
  Receive Date: 20070402
  Receipt Date: 20070323
  Transmission Date: 20071010
  Serious: Yes (Other)
  Sender: FDA-Public Use
  Company Number: JP-PFIZER INC-2007019298

PATIENT

DRUGS (2)
  1. XANAX [Suspect]
     Indication: HYPERHIDROSIS
     Route: 048
  2. PRO-BANTHINE [Suspect]
     Indication: HYPERHIDROSIS
     Dosage: FREQ:AS NEEDED
     Route: 048

REACTIONS (1)
  - INTRAOCULAR PRESSURE INCREASED [None]
